FAERS Safety Report 4408532-7 (Version None)
Quarter: 2004Q3

REPORT INFORMATION
  Report Type: 
  Country: None (occurrence: None)
  Receive Date: 20040726
  Receipt Date: 20040628
  Transmission Date: 20050211
  Serious: Yes (Disabling)
  Sender: FDA-Public Use
  Company Number: 2004UW13364

PATIENT
  Age: 70 Year
  Sex: Male
  Weight: 91.6266 kg

DRUGS (17)
  1. CRESTOR [Suspect]
     Indication: HYPERLIPIDAEMIA
     Dosage: 10 MG PO
     Route: 048
     Dates: end: 20040621
  2. ATENOLOL [Concomitant]
  3. VITAMIN B-12 [Concomitant]
  4. BENADRYL [Concomitant]
  5. DIGOXIN [Concomitant]
  6. DILTIAZEM [Concomitant]
  7. DIOVAN [Concomitant]
  8. GLUCOSAMINE [Concomitant]
  9. NOVOLIN [Concomitant]
  10. LANTUS [Concomitant]
  11. LASIX [Concomitant]
  12. METOCLOPRAMIDE [Concomitant]
  13. MYLANTA [Concomitant]
  14. NEURONTIN [Concomitant]
  15. NORTRIPTILINE [Concomitant]
  16. PLAVIX [Concomitant]
  17. ZAROXOLYN [Concomitant]

REACTIONS (2)
  - RENAL IMPAIRMENT [None]
  - RHABDOMYOLYSIS [None]
